FAERS Safety Report 4357508-7 (Version None)
Quarter: 2004Q2

REPORT INFORMATION
  Report Type: 
  Country: None (occurrence: None)
  Receive Date: 20040513
  Receipt Date: 20040512
  Transmission Date: 20050107
  Serious: Yes (Life-Threatening, Hospitalization)
  Sender: FDA-Public Use
  Company Number: DE-BRISTOL-MYERS SQUIBB COMPANY-12584751

PATIENT
  Age: 58 Year
  Sex: Male

DRUGS (5)
  1. PLATINEX [Suspect]
     Indication: GASTRIC CANCER
     Dosage: INITIAL DOSE: 06-FEB-2003
     Dates: start: 20030702, end: 20030702
  2. LEUCOVORIN CALCIUM [Suspect]
     Indication: GASTRIC CANCER
     Dates: start: 20030702, end: 20030702
  3. FLUOROURACIL [Suspect]
     Indication: GASTRIC CANCER
     Dates: start: 20030702, end: 20030702
  4. ELECTROLYTES [Concomitant]
  5. RASBURICASE [Concomitant]

REACTIONS (2)
  - RENAL FAILURE ACUTE [None]
  - TUMOUR LYSIS SYNDROME [None]
